FAERS Safety Report 16287955 (Version 1)
Quarter: 2019Q2

REPORT INFORMATION
  Report Type: Report from Study
  Country: US (occurrence: US)
  Receive Date: 20190508
  Receipt Date: 20190508
  Transmission Date: 20190711
  Serious: Yes (Death, Other)
  Sender: FDA-Public Use
  Company Number: US-VIIV HEALTHCARE LIMITED-US2019GSK075644

PATIENT
  Sex: Male

DRUGS (5)
  1. TENOFOVIR DISOPROXIL FUMARATE. [Suspect]
     Active Substance: TENOFOVIR DISOPROXIL FUMARATE
     Indication: HIV INFECTION
     Dosage: UNK
  2. DARUNAVIR [Suspect]
     Active Substance: DARUNAVIR
     Indication: HIV INFECTION
     Dosage: UNK
  3. DOLUTEGRAVIR [Suspect]
     Active Substance: DOLUTEGRAVIR
     Indication: HIV INFECTION
     Dosage: UNK
  4. EMTRICITABINE [Suspect]
     Active Substance: EMTRICITABINE
     Indication: HIV INFECTION
     Dosage: UNK
  5. COBICISTAT [Suspect]
     Active Substance: COBICISTAT
     Indication: HIV INFECTION
     Dosage: UNK

REACTIONS (3)
  - Immune reconstitution inflammatory syndrome [Fatal]
  - Treatment noncompliance [Unknown]
  - Progressive multifocal leukoencephalopathy [Fatal]
